FAERS Safety Report 8856466 (Version 4)
Quarter: 2013Q3

REPORT INFORMATION
  Report Type: Spontaneous
  Country: ES (occurrence: None)
  Receive Date: 20121018
  Receipt Date: 20130805
  Transmission Date: 20140515
  Serious: Yes (Hospitalization)
  Sender: FDA-Public Use
  Company Number: INT_00137_2012

PATIENT
  Age: 51 Year
  Sex: Female

DRUGS (15)
  1. CEFTRIAXONE [Suspect]
     Indication: ESCHERICHIA BACTERAEMIA
     Dosage: (NOT OTHERWISE SPECIFIED)
     Route: 042
     Dates: start: 20120907, end: 20120913
  2. CEFTRIAXONE [Suspect]
     Indication: PYELONEPHRITIS
     Dosage: (NOT OTHERWISE SPECIFIED)
     Route: 042
     Dates: start: 20120907, end: 20120913
  3. MEROPENEM [Suspect]
     Indication: PRODUCT USED FOR UNKNOWN INDICATION
     Dosage: (1 GM AND P.S. 100 ML INTRAVENOUS (NOT OTHERWISE SPECIFIED)
     Route: 042
  4. TELAPREVIR [Suspect]
     Indication: PRODUCT USED FOR UNKNOWN INDICATION
     Dosage: 1X/8 HOURS
     Route: 048
     Dates: start: 20120704, end: 20120925
  5. RIBAVIRIN [Concomitant]
  6. PEGINTERFERON ALFA-2B [Concomitant]
  7. EPIVIR [Concomitant]
  8. PARACETAMOL (UNKNOWN) [Concomitant]
  9. PARACETAMOL [Concomitant]
  10. ACETYLCYSTEINE [Concomitant]
  11. SODIUM BICARBONATE [Concomitant]
  12. NYSTATIN [Concomitant]
  13. EPOETIN ALFA [Concomitant]
  14. OMEPRAZOLE [Concomitant]
  15. HYOSCINE BUTYLBROMIDE [Concomitant]

REACTIONS (12)
  - Asthenia [None]
  - Gastritis [None]
  - Change in sustained attention [None]
  - Escherichia bacteraemia [None]
  - Pyelonephritis [None]
  - Sepsis [None]
  - Thrombocytopenia [None]
  - Blood bilirubin increased [None]
  - Pneumocystis jirovecii infection [None]
  - Decreased appetite [None]
  - Anaemia [None]
  - Abdominal pain upper [None]
